FAERS Safety Report 13940576 (Version 1)
Quarter: 2017Q3

REPORT INFORMATION
  Report Type: Spontaneous
  Country: US (occurrence: US)
  Receive Date: 20170906
  Receipt Date: 20170906
  Transmission Date: 20171127
  Serious: No
  Sender: FDA-Public Use
  Company Number: US-GLAXOSMITHKLINE-US2017GSK135067

PATIENT

DRUGS (2)
  1. VICTOZA [Concomitant]
     Active Substance: LIRAGLUTIDE
  2. TANZEUM [Suspect]
     Active Substance: ALBIGLUTIDE

REACTIONS (3)
  - Drug effect variable [Unknown]
  - Weight increased [Unknown]
  - Drug ineffective [Unknown]
